FAERS Safety Report 4972464-6 (Version None)
Quarter: 2006Q2

REPORT INFORMATION
  Report Type: 
  Country: None (occurrence: None)
  Receive Date: 20060413
  Receipt Date: 20050921
  Transmission Date: 20061013
  Serious: Yes (Hospitalization)
  Sender: FDA-Public Use
  Company Number: US-MERCK-0509USA03113

PATIENT
  Age: 65 Year
  Sex: Female
  Weight: 114 kg

DRUGS (3)
  1. VIOXX [Suspect]
     Indication: BACK PAIN
     Route: 048
     Dates: start: 20030301, end: 20040801
  2. VIOXX [Suspect]
     Indication: ARTHRITIS
     Route: 048
     Dates: start: 20030301, end: 20040801
  3. ALEVE [Concomitant]
     Indication: PAIN
     Route: 065

REACTIONS (3)
  - BLOOD GLUCOSE ABNORMAL [None]
  - CEREBROVASCULAR ACCIDENT [None]
  - WRIST FRACTURE [None]
